FAERS Safety Report 5907996-7 (Version None)
Quarter: 2008Q4

REPORT INFORMATION
  Report Type: 
  Country: None (occurrence: None)
  Receive Date: 20081003
  Receipt Date: 20080926
  Transmission Date: 20090506
  Serious: No
  Sender: FDA-Public Use
  Company Number: US-B.I. PHARMACEUTICALS,INC./RIDGEFIELD-2008-BP-15044BP

PATIENT
  Age: 36 Year
  Sex: Male

DRUGS (1)
  1. MICARDIS HCT [Suspect]
     Indication: HYPERTENSION

REACTIONS (1)
  - CHEST PAIN [None]
